FAERS Safety Report 14207980 (Version 2)
Quarter: 2017Q4

REPORT INFORMATION
  Report Type: Spontaneous
  Country: FR (occurrence: FR)
  Receive Date: 20171121
  Receipt Date: 20171204
  Transmission Date: 20180321
  Serious: Yes (Other)
  Sender: FDA-Public Use
  Company Number: PHHY2017FR168570

PATIENT
  Sex: Female

DRUGS (5)
  1. DOSTINEX [Suspect]
     Active Substance: CABERGOLINE
     Indication: PRODUCT USED FOR UNKNOWN INDICATION
     Route: 065
  2. SANDOSTATIN [Suspect]
     Active Substance: OCTREOTIDE ACETATE
     Indication: PRODUCT USED FOR UNKNOWN INDICATION
     Route: 065
  3. SOMAVERT [Suspect]
     Active Substance: PEGVISOMANT
     Dosage: 10 OT, UNK
     Route: 065
  4. SOMATULINE [Suspect]
     Active Substance: LANREOTIDE ACETATE
     Indication: PRODUCT USED FOR UNKNOWN INDICATION
     Dosage: UNK UNK, QID
     Route: 065
  5. SOMAVERT [Suspect]
     Active Substance: PEGVISOMANT
     Indication: PRODUCT USED FOR UNKNOWN INDICATION
     Dosage: 15 OT, QD
     Route: 065

REACTIONS (6)
  - Arthralgia [Unknown]
  - Pain [Unknown]
  - Carotid artery aneurysm [Unknown]
  - Drug resistance [Unknown]
  - Feeling abnormal [Unknown]
  - Headache [Unknown]
